FAERS Safety Report 18587605 (Version 1)
Quarter: 2020Q4

REPORT INFORMATION
  Report Type: Spontaneous
  Country: LT (occurrence: LT)
  Receive Date: 20201207
  Receipt Date: 20201207
  Transmission Date: 20210114
  Serious: Yes (Hospitalization, Other)
  Sender: FDA-Public Use
  Company Number: LT-BAYER-2020-258643

PATIENT
  Age: 24 Year
  Sex: Female

DRUGS (2)
  1. FLEREE [Suspect]
     Active Substance: LEVONORGESTREL
     Dosage: 14 ?G PER DAY CONTINUOUSLY
     Route: 015
     Dates: start: 201711
  2. YASMINELLE [Suspect]
     Active Substance: DROSPIRENONE
     Indication: CONTRACEPTION
     Dosage: UNK
     Route: 048
     Dates: start: 202006

REACTIONS (14)
  - Nephrolithiasis [None]
  - Abdominal pain [Recovering/Resolving]
  - Pulmonary embolism [Recovering/Resolving]
  - Gastrooesophageal reflux disease [None]
  - Tachycardia [Recovering/Resolving]
  - Rash [None]
  - Pyrexia [Recovered/Resolved]
  - Product monitoring error [None]
  - Pneumonia bacterial [Recovered/Resolved]
  - Arthralgia [None]
  - Pleuritic pain [Recovering/Resolving]
  - Dyspnoea exertional [Recovering/Resolving]
  - Acute respiratory failure [Recovering/Resolving]
  - Back pain [Recovering/Resolving]

NARRATIVE: CASE EVENT DATE: 201808
